FAERS Safety Report 4849343-8 (Version None)
Quarter: 2005Q4

REPORT INFORMATION
  Report Type: 
  Country: None (occurrence: None)
  Receive Date: 20051207
  Receipt Date: 20051126
  Transmission Date: 20060501
  Serious: Yes (Life-Threatening, Other)
  Sender: FDA-Public Use
  Company Number: 2005135278

PATIENT
  Age: 51 Year
  Sex: Male
  Weight: 99.7913 kg

DRUGS (2)
  1. ZMAX [Suspect]
     Indication: UPPER RESPIRATORY TRACT INFECTION
     Dosage: 2 GRAM (2 GRAM, 1 IN 1 D),
     Dates: start: 20050901, end: 20050901
  2. ALL OTHER NON-THERAPEUTIC PRODUCTS [Suspect]
     Indication: ILL-DEFINED DISORDER
     Dosage: ORAL
     Route: 048

REACTIONS (17)
  - ABDOMINAL PAIN [None]
  - BLOOD TRIGLYCERIDES INCREASED [None]
  - COLD SWEAT [None]
  - CONVULSION [None]
  - COUGH [None]
  - DIARRHOEA [None]
  - DYSPNOEA [None]
  - LACRIMATION INCREASED [None]
  - LARYNGEAL ERYTHEMA [None]
  - NAUSEA [None]
  - PHAGOPHOBIA [None]
  - RESPIRATORY DISORDER [None]
  - RHINORRHOEA [None]
  - SNEEZING [None]
  - THROAT IRRITATION [None]
  - VOMITING [None]
  - WHEEZING [None]
